FAERS Safety Report 6667324-9 (Version None)
Quarter: 2010Q2

REPORT INFORMATION
  Report Type: 
  Country: None (occurrence: None)
  Receive Date: 20100405
  Receipt Date: 20100322
  Transmission Date: 20101027
  Serious: Yes (Hospitalization)
  Sender: FDA-Public Use
  Company Number: US-ELI_LILLY_AND_COMPANY-US201002006562

PATIENT
  Sex: Female

DRUGS (20)
  1. FORTEO [Suspect]
     Indication: FRACTURE NONUNION
     Dosage: 20 UG, DAILY (1/D)
     Dates: start: 20090401
  2. SYNTHROID [Concomitant]
  3. ATENOLOL [Concomitant]
     Indication: BLOOD PRESSURE
     Dosage: 25 MG, UNK
  4. CALCIUM [Concomitant]
  5. VITAMIN D [Concomitant]
     Dosage: 50000 U, WEEKLY (1/W)
  6. VITAMIN D [Concomitant]
     Dosage: 2000 U, DAILY (1/D)
  7. OSCAL /00108001/ [Concomitant]
  8. GLUCOSAMINE W/CHONDROITIN [Concomitant]
  9. CENTRUM SILVER [Concomitant]
  10. FISH OIL [Concomitant]
  11. DHEA [Concomitant]
  12. MSM [Concomitant]
  13. VITAMIN B COMPLEX CAP [Concomitant]
  14. VITAMIN C [Concomitant]
  15. JUICE PLUS [Concomitant]
  16. COENZYME Q10 [Concomitant]
  17. VITAMIN B-12 [Concomitant]
     Route: 060
  18. IRON [Concomitant]
  19. ANTACID TAB [Concomitant]
  20. PROTON PUMP INHIBITORS [Concomitant]

REACTIONS (5)
  - BLOOD CREATININE INCREASED [None]
  - DEVICE BREAKAGE [None]
  - GASTROOESOPHAGEAL REFLUX DISEASE [None]
  - MUSCLE SPASMS [None]
  - OFF LABEL USE [None]
